FAERS Safety Report 25914426 (Version 1)
Quarter: 2025Q4

REPORT INFORMATION
  Report Type: Spontaneous
  Country: KR (occurrence: KR)
  Receive Date: 20251013
  Receipt Date: 20251013
  Transmission Date: 20260117
  Serious: Yes (Other)
  Sender: ALKEM
  Company Number: KR-ALKEM LABORATORIES LIMITED-KR-ALKEM-2025-10941

PATIENT

DRUGS (1)
  1. MESALAMINE [Suspect]
     Active Substance: MESALAMINE
     Indication: Colitis ulcerative
     Dosage: UNK
     Route: 065

REACTIONS (1)
  - Pancytopenia [Unknown]
